FAERS Safety Report 8604610-7 (Version None)
Quarter: 2012Q3

REPORT INFORMATION
  Report Type: 
  Country: None (occurrence: None)
  Receive Date: 20120808
  Receipt Date: 20120808
  Transmission Date: 20120928
  Serious: Yes (Hospitalization)
  Sender: FDA-Public Use
  Company Number: None

PATIENT
  Sex: Male

DRUGS (2)
  1. TRAZODONE HCL [Suspect]
     Indication: DRUG DEPENDENCE
     Dosage: 50MG HS PO
     Route: 048
     Dates: start: 20120125, end: 20120725
  2. TRAZODONE HCL [Suspect]
     Indication: SCHIZOAFFECTIVE DISORDER
     Dosage: 50MG HS PO
     Route: 048
     Dates: start: 20120125, end: 20120725

REACTIONS (2)
  - PRIAPISM [None]
  - ERECTILE DYSFUNCTION [None]
